FAERS Safety Report 8798495 (Version 2)
Quarter: 2013Q4

REPORT INFORMATION
  Report Type: Spontaneous
  Country: US (occurrence: US)
  Receive Date: 20120920
  Receipt Date: 20131031
  Transmission Date: 20140711
  Serious: Yes (Disabling)
  Sender: FDA-Public Use
  Company Number: US-009507513-1209USA007840

PATIENT
  Age: 65 Year
  Sex: Female

DRUGS (4)
  1. ZOCOR [Suspect]
     Indication: HYPERLIPIDAEMIA
     Dosage: UNK
     Dates: end: 2009
  2. PRILOSEC [Concomitant]
     Dosage: 20 MG, UNK
  3. INDERAL [Concomitant]
     Dosage: 120 MG, QD
  4. LISINOPRIL [Concomitant]
     Dosage: 20 MG, UNK

REACTIONS (3)
  - Limb discomfort [Not Recovered/Not Resolved]
  - Muscular weakness [Not Recovered/Not Resolved]
  - Myalgia [Not Recovered/Not Resolved]
